FAERS Safety Report 12450742 (Version 1)
Quarter: 2016Q2

REPORT INFORMATION
  Report Type: Spontaneous
  Country: US (occurrence: None)
  Receive Date: 20160608
  Receipt Date: 20160608
  Transmission Date: 20160815
  Serious: Yes (Other)
  Sender: FDA-Public Use
  Company Number: None

PATIENT
  Age: 25 Year
  Sex: Female
  Weight: 56.7 kg

DRUGS (2)
  1. ICY HOT MEDICATED [Suspect]
     Active Substance: MENTHOL
     Indication: MYALGIA
     Dosage: 1 ROLL ON APPLICATOR FOUR TIMES A DAY APPLIED TO A SURFACE, USUALLY THE SKIN
     Dates: start: 20160606, end: 20160607
  2. ONE A DAY MULTIVITAMINS [Concomitant]

REACTIONS (3)
  - Application site erythema [None]
  - Application site pain [None]
  - Chemical injury [None]

NARRATIVE: CASE EVENT DATE: 20160607
